FAERS Safety Report 7535831-2 (Version None)
Quarter: 2011Q2

REPORT INFORMATION
  Report Type: 
  Country: None (occurrence: None)
  Receive Date: 20110609
  Receipt Date: 20110121
  Transmission Date: 20111010
  Serious: Yes (Hospitalization)
  Sender: FDA-Public Use
  Company Number: US-BAYER-2011-023361

PATIENT
  Sex: Female
  Weight: 104.31 kg

DRUGS (3)
  1. YASMIN [Suspect]
     Indication: CONTRACEPTION
     Dosage: UNK
     Dates: start: 20020101, end: 20040101
  2. ADVIL LIQUI-GELS [Concomitant]
     Dosage: UNK UNK, PRN
  3. YAZ [Suspect]
     Indication: CONTRACEPTION
     Dosage: STOP DATE 2003/2004
     Dates: start: 20020101, end: 20040101

REACTIONS (3)
  - DYSPNOEA [None]
  - CHEST PAIN [None]
  - CHOLELITHIASIS [None]
